FAERS Safety Report 8583997-8 (Version None)
Quarter: 2012Q3

REPORT INFORMATION
  Report Type: 
  Country: None (occurrence: None)
  Receive Date: 20120810
  Receipt Date: 20120712
  Transmission Date: 20120928
  Serious: No
  Sender: FDA-Public Use
  Company Number: US-009507513-1207USA007090

PATIENT

DRUGS (5)
  1. PEGASYS [Suspect]
  2. OMEGA-3-ACID ETHYL ESTERS [Concomitant]
  3. RIBAVIRIN [Suspect]
     Dosage: 400 MG, UNK
  4. VITAMINS (UNSPECIFIED) [Concomitant]
  5. VICTRELIS [Suspect]
     Dosage: 4 DF (800 MG) TID,EVERY 7-9 HOURS
     Route: 048

REACTIONS (5)
  - WHITE BLOOD CELL COUNT DECREASED [None]
  - PRURITUS [None]
  - DYSGEUSIA [None]
  - PLATELET COUNT DECREASED [None]
  - DIARRHOEA [None]
